FAERS Safety Report 5677512-6 (Version None)
Quarter: 2008Q1

REPORT INFORMATION
  Report Type: 
  Country: None (occurrence: None)
  Receive Date: 20080324
  Receipt Date: 20080319
  Transmission Date: 20080703
  Serious: Yes (Hospitalization, Other)
  Sender: FDA-Public Use
  Company Number: FR-BRISTOL-MYERS SQUIBB COMPANY-14105522

PATIENT
  Age: 59 Year
  Sex: Male

DRUGS (3)
  1. REYATAZ [Suspect]
     Indication: HIV INFECTION
  2. RITONAVIR [Interacting]
     Indication: HIV INFECTION
  3. FLUTICASONE [Interacting]
     Indication: ASTHMA
     Route: 055

REACTIONS (6)
  - ADRENAL INSUFFICIENCY [None]
  - BLOOD BILIRUBIN UNCONJUGATED INCREASED [None]
  - DIABETES MELLITUS [None]
  - DRUG INTERACTION [None]
  - HYPERKALAEMIA [None]
  - HYPONATRAEMIA [None]
